FAERS Safety Report 17853947 (Version 2)
Quarter: 2020Q2

REPORT INFORMATION
  Report Type: Spontaneous
  Country: IT (occurrence: IT)
  Receive Date: 20200603
  Receipt Date: 20200605
  Transmission Date: 20200714
  Serious: Yes (Hospitalization)
  Sender: FDA-Public Use
  Company Number: IT-SUN PHARMACEUTICAL INDUSTRIES LTD-2020RR-249092

PATIENT
  Age: 77 Year
  Sex: Male

DRUGS (2)
  1. PLAQUENIL [Suspect]
     Active Substance: HYDROXYCHLOROQUINE SULFATE
     Indication: CORONAVIRUS INFECTION
     Dosage: 400 MILLIGRAM, DAILY
     Route: 048
     Dates: start: 20200410, end: 20200413
  2. AZITHROMYCIN ANHYDROUS. [Suspect]
     Active Substance: AZITHROMYCIN ANHYDROUS
     Indication: CORONAVIRUS INFECTION
     Dosage: 1 DOSAGE FORM, DAILY
     Route: 048
     Dates: start: 20200410, end: 20200412

REACTIONS (6)
  - Purpura [Recovering/Resolving]
  - Pruritus [Recovering/Resolving]
  - Injury [Recovering/Resolving]
  - Erythema [Recovering/Resolving]
  - Off label use [Recovering/Resolving]
  - Rash [Recovering/Resolving]

NARRATIVE: CASE EVENT DATE: 20200411
